FAERS Safety Report 19612876 (Version 1)
Quarter: 2021Q3

REPORT INFORMATION
  Report Type: Spontaneous
  Country: FR (occurrence: FR)
  Receive Date: 20210727
  Receipt Date: 20210727
  Transmission Date: 20211014
  Serious: Yes (Hospitalization)
  Sender: FDA-Public Use
  Company Number: FR-ACCORD-233053

PATIENT
  Age: 72 Year
  Sex: Male

DRUGS (3)
  1. CARBOPLATIN. [Suspect]
     Active Substance: CARBOPLATIN
     Indication: LUNG ADENOCARCINOMA
     Route: 042
     Dates: start: 20210525, end: 20210525
  2. ALIMTA [Suspect]
     Active Substance: PEMETREXED DISODIUM
     Indication: LUNG ADENOCARCINOMA
     Dosage: STRENGTH?500 MG
     Route: 042
     Dates: start: 20210525, end: 20210525
  3. PEMBROLIZUMAB. [Suspect]
     Active Substance: PEMBROLIZUMAB
     Indication: LUNG ADENOCARCINOMA
     Route: 042
     Dates: start: 20210525, end: 20210525

REACTIONS (3)
  - Eosinophilia [Recovered/Resolved]
  - Rash [Recovered/Resolved]
  - Large intestine perforation [Recovering/Resolving]

NARRATIVE: CASE EVENT DATE: 20210528
